FAERS Safety Report 11647539 (Version 4)
Quarter: 2018Q3

REPORT INFORMATION
  Report Type: Spontaneous
  Country: DE (occurrence: DE)
  Receive Date: 20151021
  Receipt Date: 20180927
  Transmission Date: 20181010
  Serious: Yes (Other)
  Sender: FDA-Public Use
  Company Number: DE-AUROBINDO-AUR-APL-2015-09289

PATIENT
  Age: 31 Year
  Sex: Male

DRUGS (1)
  1. ZOLPIDEM [Suspect]
     Active Substance: ZOLPIDEM\ZOLPIDEM TARTRATE
     Indication: INSOMNIA
     Dosage: 10 MG, UNK
     Route: 065

REACTIONS (9)
  - Malaise [Unknown]
  - Somnambulism [Unknown]
  - Sleep disorder [Unknown]
  - Thirst [Unknown]
  - Overdose [Unknown]
  - Toxicity to various agents [Unknown]
  - Anterograde amnesia [Unknown]
  - Vomiting [Unknown]
  - Amnesia [Unknown]
